FAERS Safety Report 14569440 (Version 3)
Quarter: 2018Q1

REPORT INFORMATION
  Report Type: Spontaneous
  Country: ES (occurrence: ES)
  Receive Date: 20180223
  Receipt Date: 20180330
  Transmission Date: 20180509
  Serious: Yes (Hospitalization)
  Sender: FDA-Public Use
  Company Number: ES-ROCHE-2078938

PATIENT
  Age: 61 Year
  Sex: Female

DRUGS (8)
  1. VINCRISTINE [Suspect]
     Active Substance: VINCRISTINE
     Indication: IMMUNOSUPPRESSANT DRUG THERAPY
     Route: 065
  2. CYCLOPHOSPHAMIDE. [Suspect]
     Active Substance: CYCLOPHOSPHAMIDE
     Indication: IMMUNOSUPPRESSANT DRUG THERAPY
     Route: 065
  3. FLUDARABINE [Suspect]
     Active Substance: FLUDARABINE PHOSPHATE
     Indication: IMMUNOSUPPRESSANT DRUG THERAPY
     Route: 065
  4. RITUXIMAB. [Suspect]
     Active Substance: RITUXIMAB
     Indication: IMMUNOSUPPRESSANT DRUG THERAPY
     Route: 065
  5. DOXORUBICIN [Suspect]
     Active Substance: DOXORUBICIN
     Indication: IMMUNOSUPPRESSANT DRUG THERAPY
     Route: 065
  6. MITOXANTRONE [Suspect]
     Active Substance: MITOXANTRONE HYDROCHLORIDE
     Indication: IMMUNOSUPPRESSANT DRUG THERAPY
     Route: 065
  7. GALIXIMAB [Suspect]
     Active Substance: GALIXIMAB
     Indication: IMMUNOSUPPRESSANT DRUG THERAPY
     Route: 065
  8. PREDNISONE. [Suspect]
     Active Substance: PREDNISONE
     Indication: IMMUNOSUPPRESSANT DRUG THERAPY
     Route: 065

REACTIONS (6)
  - Portal hypertension [Recovering/Resolving]
  - Hepatitis E [Recovered/Resolved with Sequelae]
  - Chronic hepatitis [Recovered/Resolved with Sequelae]
  - Liver disorder [Recovering/Resolving]
  - Hepatic failure [Recovering/Resolving]
  - Varices oesophageal [Recovering/Resolving]
